FAERS Safety Report 8950896 (Version 1)
Quarter: 2012Q4

REPORT INFORMATION
  Report Type: 
  Country: DE (occurrence: DE)
  Receive Date: 20121207
  Receipt Date: 20121207
  Transmission Date: 20130627
  Serious: Yes (Death, Life-Threatening, Hospitalization)
  Sender: FDA-Public Use
  Company Number: DE-WATSON-2012-20784

PATIENT
  Age: 30 Year
  Sex: Male

DRUGS (3)
  1. METFORMIN HYDROCHLORIDE [Suspect]
     Indication: PRODUCT USED FOR UNKNOWN INDICATION
     Dosage: 2000 mg, daily
     Route: 048
     Dates: start: 20120704, end: 20120920
  2. CLOZAPINE [Suspect]
     Indication: PRODUCT USED FOR UNKNOWN INDICATION
     Dosage: 300 mg, daily
     Route: 048
     Dates: start: 20120616, end: 20120703
  3. CLOZAPINE [Suspect]
     Dosage: 12.5-250 mg
     Route: 048
     Dates: start: 201204, end: 20120615

REACTIONS (1)
  - Cardiac arrest [Fatal]
